FAERS Safety Report 4810090-X (Version None)
Quarter: 2005Q4

REPORT INFORMATION
  Report Type: 
  Country: None (occurrence: None)
  Receive Date: 20051026
  Receipt Date: 20050804
  Transmission Date: 20060501
  Serious: Yes (Hospitalization)
  Sender: FDA-Public Use
  Company Number: 2005AC01493

PATIENT
  Age: 18 Year
  Sex: Male
  Weight: 90 kg

DRUGS (4)
  1. SEROQUEL [Suspect]
     Indication: SCHIZOPHRENIA
     Route: 048
     Dates: start: 20050401, end: 20050728
  2. SEROQUEL [Suspect]
     Dosage: DURING THIS PERIOD, DRUG WAS REDUCED FROM 900 MG TO 0 MG
     Route: 048
     Dates: start: 20050728, end: 20050803
  3. SEROQUEL [Suspect]
     Route: 048
  4. ABILIFY [Concomitant]
     Indication: PSYCHOTIC DISORDER
     Dates: start: 20050728

REACTIONS (4)
  - AKATHISIA [None]
  - DRUG WITHDRAWAL SYNDROME [None]
  - DYSKINESIA [None]
  - DYSTONIA [None]
